FAERS Safety Report 7772909-2 (Version None)
Quarter: 2011Q3

REPORT INFORMATION
  Report Type: 
  Country: None (occurrence: None)
  Receive Date: 20110922
  Receipt Date: 20110913
  Transmission Date: 20111222
  Serious: Yes (Other)
  Sender: FDA-Public Use
  Company Number: US-ASTRAZENECA-2011SE39098

PATIENT
  Age: 65 Year
  Sex: Female

DRUGS (5)
  1. SYMBICORT [Suspect]
     Dosage: 160/4.5 MCG TOTAL DAILY DOSE
     Route: 055
  2. MYLANTA [Concomitant]
  3. NAPROXEN [Concomitant]
  4. NEXIUM [Suspect]
     Route: 048
  5. XANAX [Concomitant]

REACTIONS (9)
  - DRUG DOSE OMISSION [None]
  - ASTHMA [None]
  - CHRONIC OBSTRUCTIVE PULMONARY DISEASE [None]
  - LOWER LIMB FRACTURE [None]
  - HIATUS HERNIA [None]
  - FALL [None]
  - BRONCHITIS [None]
  - BLINDNESS UNILATERAL [None]
  - VISUAL IMPAIRMENT [None]
